FAERS Safety Report 12635741 (Version 1)
Quarter: 2016Q3

REPORT INFORMATION
  Report Type: Spontaneous
  Country: US (occurrence: US)
  Receive Date: 20160809
  Receipt Date: 20160809
  Transmission Date: 20161109
  Serious: No
  Sender: FDA-Public Use
  Company Number: US-GLENMARK PHARMACEUTICALS INC, USA.-2015GMK019843

PATIENT

DRUGS (1)
  1. ONDANSETRON [Suspect]
     Active Substance: ONDANSETRON
     Indication: NAUSEA
     Dosage: ONE DF, EVERY 4 HOURS
     Route: 048
     Dates: start: 201509

REACTIONS (5)
  - Drug ineffective for unapproved indication [Unknown]
  - Exposure during pregnancy [Unknown]
  - Product taste abnormal [Unknown]
  - Product substitution issue [Unknown]
  - No adverse event [None]

NARRATIVE: CASE EVENT DATE: 201509
